FAERS Safety Report 16070127 (Version 1)
Quarter: 2019Q1

REPORT INFORMATION
  Report Type: Report from Study
  Country: ES (occurrence: ES)
  Receive Date: 20190314
  Receipt Date: 20190314
  Transmission Date: 20190418
  Serious: Yes (Death, Hospitalization, Other)
  Sender: FDA-Public Use
  Company Number: ES-ACCORD-112505

PATIENT
  Age: 75 Year
  Sex: Female

DRUGS (6)
  1. METAMIZOLE SODIUM [Concomitant]
     Active Substance: METAMIZOLE SODIUM
     Dosage: 1725 MG DOSAGE/DOSE: 575 MG,NO. SHOTS PER FREQUENCY UNIT: 3/1 DAY
     Route: 048
     Dates: start: 2015, end: 20150918
  2. ALLOPURINOL. [Suspect]
     Active Substance: ALLOPURINOL
     Indication: PRODUCT USED FOR UNKNOWN INDICATION
     Dosage: 100 MGDOSAGE/DOSE: 100 MG,NUMBER OF SHOTS PER FREQUENCY UNIT:1 FREQUENCY
     Route: 048
     Dates: start: 2015, end: 20150918
  3. TRAMADOL. [Interacting]
     Active Substance: TRAMADOL
     Indication: PRODUCT USED FOR UNKNOWN INDICATION
     Dosage: 150 MG DOSAGE/DOSE: 50 MG NO. SHOTS PER FREQUENCY UNIT: 3, 1 DAY
     Route: 048
     Dates: start: 2015, end: 20150918
  4. SINTROM [Interacting]
     Active Substance: ACENOCOUMAROL
     Indication: VALVULOPLASTY CARDIAC
     Route: 048
     Dates: start: 2013, end: 20150918
  5. SIMVASTATIN. [Interacting]
     Active Substance: SIMVASTATIN
     Indication: HYPERCHOLESTEROLAEMIA
     Dosage: 60 MG,DOSAGE PER DOSE:20 MG,NO.SHOTS PER FREQUENCY UNIT: 3 DAY
     Route: 048
     Dates: start: 2013, end: 20150918
  6. OMEPRAZOLE. [Interacting]
     Active Substance: OMEPRAZOLE
     Indication: PRODUCT USED FOR UNKNOWN INDICATION
     Dosage: 20 MG,DOSAGE/DOSE: 20 MG,NUMBER OF SHOTS PER FREQUENCY UNIT: 1
     Route: 048
     Dates: start: 2013, end: 20150918

REACTIONS (2)
  - Drug interaction [Unknown]
  - Cerebral haemorrhage [Fatal]

NARRATIVE: CASE EVENT DATE: 20150918
